FAERS Safety Report 9011591 (Version 1)
Quarter: 2013Q1

REPORT INFORMATION
  Report Type: Spontaneous
  Country: NL (occurrence: NL)
  Receive Date: 20130108
  Receipt Date: 20130108
  Transmission Date: 20140127
  Serious: Yes (Hospitalization)
  Sender: FDA-Public Use
  Company Number: NL-TEVA-378869ISR

PATIENT
  Sex: Female
  Weight: 97 kg

DRUGS (10)
  1. TAMOXIFEN [Suspect]
     Indication: BREAST CANCER
     Route: 048
     Dates: start: 201105
  2. ACETAZOLAMIDE CAPSULE MGA 250MG [Concomitant]
     Route: 048
  3. ATROPINE OOGDRUPPELS  5MG/ML [Concomitant]
     Dosage: 1 DROP 4 TIMES DAILY IN THE RIGHT EYE
     Route: 047
  4. HYDROCORTISON CREME 10MG/G [Concomitant]
     Dosage: 2 DD APPLICATION
     Route: 003
  5. PREDNISOLON CAPSULE 30MG [Concomitant]
     Route: 048
  6. ZOLPIDEM TABLET FO 10MG [Concomitant]
     Dosage: AT NIGHT
     Route: 048
  7. TAVEGYL TABLET 1MG [Concomitant]
     Dosage: 1 DD 2
     Route: 048
  8. TOBRADEX OOGDRUPPELS FLACON 5ML [Concomitant]
     Dosage: 4 DD 1 IN RIGHT EYE
     Route: 047
  9. TIMO-COMOD OOGDRUPPELS 5MG/ML FLACON 10ML [Concomitant]
     Dosage: 2 DD 1 IN THE RIGHT EYE
     Route: 047
  10. PREDNISOLON CAPSULE 20MG [Concomitant]
     Route: 048

REACTIONS (1)
  - Retinal detachment [Recovered/Resolved]
